FAERS Safety Report 11481835 (Version 2)
Quarter: 2015Q3

REPORT INFORMATION
  Report Type: Spontaneous
  Country: US (occurrence: US)
  Receive Date: 20150903
  Receipt Date: 20150903
  Transmission Date: 20151125
  Serious: No
  Sender: FDA-Public Use
  Company Number: US-ELI_LILLY_AND_COMPANY-US201203007322

PATIENT
  Age: 74 Year
  Sex: Male

DRUGS (2)
  1. CYMBALTA [Suspect]
     Active Substance: DULOXETINE HYDROCHLORIDE
     Indication: HYPERSENSITIVITY
     Dosage: 30 MG, QD
     Dates: end: 201201
  2. CYMBALTA [Suspect]
     Active Substance: DULOXETINE HYDROCHLORIDE
     Dosage: 30 MG, QOD

REACTIONS (11)
  - Personality change [Unknown]
  - Drug effect increased [Unknown]
  - Abdominal discomfort [Unknown]
  - Eye contusion [Unknown]
  - Decreased appetite [Unknown]
  - Feeling abnormal [Unknown]
  - Pruritus [Unknown]
  - Anorgasmia [Recovering/Resolving]
  - Malaise [Unknown]
  - Neoplasm skin [Recovered/Resolved]
  - Off label use [Recovered/Resolved]
